FAERS Safety Report 10053715 (Version 2)
Quarter: 2014Q2

REPORT INFORMATION
  Report Type: Spontaneous
  Country: AU (occurrence: AU)
  Receive Date: 20140402
  Receipt Date: 20140402
  Transmission Date: 20141212
  Serious: Yes (Other)
  Sender: FDA-Public Use
  Company Number: PHHY2014AU030214

PATIENT
  Sex: Female
  Weight: 77 kg

DRUGS (4)
  1. ACLASTA [Suspect]
     Indication: OSTEOPOROSIS
     Dosage: 5 MG
     Route: 042
     Dates: start: 201110
  2. ACLASTA [Suspect]
     Dosage: 5 MG
     Route: 042
     Dates: start: 201210
  3. ACLASTA [Suspect]
     Dosage: 5 MG
     Route: 042
     Dates: start: 201310
  4. BETA BLOCKING AGENTS [Concomitant]
     Dosage: UNK

REACTIONS (1)
  - Hyperglycaemia [Recovered/Resolved]
